FAERS Safety Report 23039209 (Version 3)
Quarter: 2023Q4

REPORT INFORMATION
  Report Type: Report from Study
  Country: HU (occurrence: HU)
  Receive Date: 20231006
  Receipt Date: 20231027
  Transmission Date: 20240110
  Serious: Yes (Hospitalization)
  Sender: FDA-Public Use
  Company Number: HU-PFIZER INC-2020136767

PATIENT
  Age: 71 Year
  Sex: Male

DRUGS (6)
  1. ENZALUTAMIDE [Suspect]
     Active Substance: ENZALUTAMIDE
     Indication: Neoplasm prostate
     Route: 048
     Dates: start: 20190919, end: 20200202
  2. QUETIAPINE [Concomitant]
     Active Substance: QUETIAPINE
     Indication: Parkinson^s disease
     Route: 048
     Dates: start: 201809
  3. METFORMIN HYDROCHLORIDE [Concomitant]
     Active Substance: METFORMIN HYDROCHLORIDE
     Indication: Diabetes mellitus
     Route: 048
     Dates: start: 2017
  4. FIRMAGON [Concomitant]
     Active Substance: DEGARELIX ACETATE
     Indication: Neoplasm prostate
     Dosage: UNK UNK, MONTHLY
     Route: 003
     Dates: start: 20180723
  5. STALEVO [Concomitant]
     Active Substance: CARBIDOPA\ENTACAPONE\LEVODOPA
     Indication: Parkinson^s disease
     Dosage: [CARBIDOPA 37.5 MG]/[ENTACAPONE 200 MG]/[LEVODOPA 150 MG], ONCE DAILY
     Route: 048
     Dates: start: 201809
  6. FERRLECIT [Concomitant]
     Active Substance: SODIUM FERRIC GLUCONATE COMPLEX
     Indication: Neoplasm prostate
     Dosage: 12.5 MG, TOTAL DOSE (ONCE)
     Route: 017
     Dates: start: 20200203, end: 20200203

REACTIONS (1)
  - Anaemia [Recovered/Resolved]

NARRATIVE: CASE EVENT DATE: 20200205
